FAERS Safety Report 9691719 (Version 2)
Quarter: 2014Q2

REPORT INFORMATION
  Report Type: Spontaneous
  Country: US (occurrence: US)
  Receive Date: 20131115
  Receipt Date: 20140516
  Transmission Date: 20141212
  Serious: Yes (Death, Hospitalization)
  Sender: FDA-Public Use
  Company Number: US-B.I. PHARMACEUTICALS,INC./RIDGEFIELD-2013-BI-37007BP

PATIENT
  Age: 75 Year
  Sex: Male
  Weight: 163.29 kg

DRUGS (9)
  1. PRADAXA [Suspect]
     Indication: ATRIAL FIBRILLATION
     Dosage: 150 MG
     Route: 048
     Dates: start: 201103, end: 20120922
  2. PRADAXA [Suspect]
     Indication: ANTICOAGULANT THERAPY
     Route: 065
     Dates: start: 201210, end: 20130123
  3. FUROSEMIDE [Concomitant]
     Dosage: 80 MG
     Route: 048
  4. CARTIA [Concomitant]
     Dosage: 480 MG
     Route: 065
  5. METOPROLOL [Concomitant]
     Indication: HYPERTENSION
     Dosage: 200 MG
     Route: 048
  6. ENALAPRIL MALEATE [Concomitant]
     Dosage: 40 MG
     Route: 065
  7. CRESTOR [Concomitant]
     Dosage: 20 MG
     Route: 048
  8. ECOTRIN [Concomitant]
     Route: 065
  9. XALATAN [Concomitant]
     Indication: GLAUCOMA
     Route: 065

REACTIONS (5)
  - Cerebellar haemorrhage [Fatal]
  - Cerebral haemorrhage [Fatal]
  - Lower gastrointestinal haemorrhage [Recovered/Resolved]
  - Anaemia [Unknown]
  - Prothrombin time prolonged [Unknown]
